FAERS Safety Report 5991772-3 (Version None)
Quarter: 2008Q4

REPORT INFORMATION
  Report Type: 
  Country: None (occurrence: None)
  Receive Date: 20081211
  Receipt Date: 20080506
  Transmission Date: 20090506
  Serious: No
  Sender: FDA-Public Use
  Company Number: US-AMGEN-KDL274984

PATIENT
  Sex: Female

DRUGS (3)
  1. ENBREL [Suspect]
     Indication: RHEUMATOID ARTHRITIS
     Route: 058
     Dates: start: 20080208
  2. METHOTREXATE [Concomitant]
     Route: 048
     Dates: start: 20070701
  3. HYDROXYCHLOROQUINE SULFATE [Concomitant]
     Route: 048
     Dates: start: 20050101

REACTIONS (13)
  - ARTHRALGIA [None]
  - BACK PAIN [None]
  - COUGH [None]
  - ERYTHEMA [None]
  - FATIGUE [None]
  - FEELING ABNORMAL [None]
  - HEADACHE [None]
  - HOT FLUSH [None]
  - HYPOAESTHESIA [None]
  - MUSCULOSKELETAL PAIN [None]
  - OEDEMA PERIPHERAL [None]
  - PAIN IN EXTREMITY [None]
  - SWELLING FACE [None]
